FAERS Safety Report 6122517-4 (Version None)
Quarter: 2009Q1

REPORT INFORMATION
  Report Type: 
  Country: None (occurrence: None)
  Receive Date: 20090318
  Receipt Date: 20090120
  Transmission Date: 20090719
  Serious: No
  Sender: FDA-Public Use
  Company Number: US-ASTRAZENECA-2008UW22522

PATIENT
  Age: 76 Year
  Sex: Female

DRUGS (14)
  1. SYMBICORT [Suspect]
     Indication: ASTHMA
     Dosage: 160 UG/4.5 UG, BID
     Route: 055
     Dates: start: 20080601
  2. ALENDRONATE SODIUM [Concomitant]
  3. PREVACID [Concomitant]
  4. FUROSEMIDE [Concomitant]
  5. POTASSIUM CHLORIDE [Concomitant]
  6. MUCINEX DM [Concomitant]
  7. ALLERGY D [Concomitant]
  8. CALCIUM PLUS D [Concomitant]
  9. ADULT MULTI VIT [Concomitant]
  10. FISH OIL [Concomitant]
  11. PROAIR HFA [Concomitant]
  12. SPIRIVA [Concomitant]
  13. SINGULAIR [Concomitant]
  14. ALBUTEROL [Concomitant]

REACTIONS (2)
  - ASTHMA [None]
  - DRUG INEFFECTIVE [None]
